FAERS Safety Report 14611053 (Version 1)
Quarter: 2018Q1

REPORT INFORMATION
  Report Type: Report from Study
  Country: None (occurrence: US)
  Receive Date: 20180308
  Receipt Date: 20180308
  Transmission Date: 20180509
  Serious: Yes (Other)
  Sender: FDA-Public Use
  Company Number: US-ABBVIE-18K-163-2275878-00

PATIENT
  Age: 59 Year
  Sex: Female
  Weight: 90.8 kg

DRUGS (2)
  1. PREDNISONE. [Concomitant]
     Active Substance: PREDNISONE
     Indication: HYPOTRICHOSIS
  2. HUMIRA [Suspect]
     Active Substance: ADALIMUMAB
     Indication: PSORIASIS
     Route: 058

REACTIONS (5)
  - Intestinal mass [Recovered/Resolved]
  - Rectal haemorrhage [Unknown]
  - Precancerous cells present [Recovered/Resolved]
  - Haematochezia [Recovered/Resolved]
  - Intestinal polyp [Recovered/Resolved]

NARRATIVE: CASE EVENT DATE: 201801
